FAERS Safety Report 5797670-2 (Version None)
Quarter: 2008Q3

REPORT INFORMATION
  Report Type: 
  Country: None (occurrence: None)
  Receive Date: 20080702
  Receipt Date: 20080623
  Transmission Date: 20090109
  Serious: Yes (Hospitalization)
  Sender: FDA-Public Use
  Company Number: SE-JNJFOC-20080605654

PATIENT
  Sex: Male
  Weight: 1.62 kg

DRUGS (2)
  1. REMICADE [Suspect]
     Indication: DRUG EXPOSURE DURING PREGNANCY
  2. CORTISONE ACETATE INJ [Concomitant]

REACTIONS (2)
  - FOETAL GROWTH RETARDATION [None]
  - PREMATURE BABY [None]
